FAERS Safety Report 10870722 (Version 2)
Quarter: 2015Q1

REPORT INFORMATION
  Report Type: Spontaneous
  Country: IE (occurrence: None)
  Receive Date: 20150223
  Receipt Date: 20150312
  Transmission Date: 20150721
  Serious: Yes (Other)
  Sender: FDA-Public Use
  Company Number: 2750690

PATIENT
  Age: 52 Year
  Sex: Female
  Weight: 124 kg

DRUGS (2)
  1. VANCOMYCIN HYDROCHLORIDE. [Suspect]
     Active Substance: VANCOMYCIN HYDROCHLORIDE
     Indication: SEPSIS
     Dosage: 2G AT 07:50AM AND 1.5G AT 10:00 AM
     Route: 042
     Dates: start: 20130109, end: 20130111
  2. ACICLOVIR [Suspect]
     Active Substance: ACYCLOVIR
     Indication: HERPES SIMPLEX ENCEPHALITIS
     Route: 042
     Dates: start: 20130109, end: 20130109

REACTIONS (4)
  - Acute kidney injury [None]
  - Nephropathy [None]
  - Drug prescribing error [None]
  - Medication error [None]

NARRATIVE: CASE EVENT DATE: 20130109
